FAERS Safety Report 6579281-4 (Version None)
Quarter: 2010Q1

REPORT INFORMATION
  Report Type: 
  Country: None (occurrence: None)
  Receive Date: 20100212
  Receipt Date: 20100203
  Transmission Date: 20100710
  Serious: Yes (Hospitalization)
  Sender: FDA-Public Use
  Company Number: CH-ASTRAZENECA-2010SE05029

PATIENT
  Age: 44 Year
  Sex: Female

DRUGS (4)
  1. SEROQUEL [Suspect]
     Indication: ANXIETY DISORDER
     Route: 048
     Dates: start: 20091201
  2. TRAMAL [Suspect]
     Indication: PAIN
     Route: 048
     Dates: end: 20100123
  3. FLUCTINE [Suspect]
     Indication: BIPOLAR DISORDER
     Route: 048
     Dates: start: 20091201
  4. DALMADORM [Concomitant]
     Indication: SLEEP DISORDER
     Route: 048
     Dates: start: 20091201

REACTIONS (6)
  - AGITATION [None]
  - BODY TEMPERATURE INCREASED [None]
  - CHEST DISCOMFORT [None]
  - CONFUSIONAL STATE [None]
  - HYPERREFLEXIA [None]
  - SEROTONIN SYNDROME [None]
